FAERS Safety Report 4388372-8 (Version None)
Quarter: 2004Q3

REPORT INFORMATION
  Report Type: 
  Country: None (occurrence: None)
  Receive Date: 20040701
  Receipt Date: 20030929
  Transmission Date: 20050211
  Serious: Yes (Hospitalization, Other)
  Sender: FDA-Public Use
  Company Number: US-MERCK-0310USA00124

PATIENT
  Sex: Female
  Weight: 77 kg

DRUGS (10)
  1. ASPIRIN [Concomitant]
     Indication: CARDIAC MURMUR
     Route: 065
     Dates: start: 19890101, end: 20040511
  2. ASPIRIN [Concomitant]
     Indication: DYSPEPSIA
     Route: 065
     Dates: start: 19890101, end: 20040511
  3. LOTENSIN [Concomitant]
     Indication: BLOOD PRESSURE ABNORMAL
     Route: 065
     Dates: start: 19991001, end: 20010625
  4. ZYRTEC [Concomitant]
     Indication: HYPERSENSITIVITY
     Route: 065
  5. HYDRO-CHLOR [Concomitant]
     Indication: HYPERTENSION
     Route: 065
  6. PREDNISONE [Concomitant]
     Route: 065
  7. VIOXX [Suspect]
     Indication: ARTHRALGIA
     Route: 048
     Dates: start: 20000116, end: 20010303
  8. VIOXX [Suspect]
     Route: 048
     Dates: start: 20000116, end: 20010303
  9. VIOXX [Suspect]
     Indication: OSTEOARTHRITIS
     Route: 048
     Dates: start: 20000116, end: 20010303
  10. VIOXX [Suspect]
     Route: 048
     Dates: start: 20000116, end: 20010303

REACTIONS (15)
  - ASTHMA [None]
  - BLOOD CHOLESTEROL INCREASED [None]
  - CEREBROVASCULAR ACCIDENT [None]
  - CHRONIC OBSTRUCTIVE AIRWAYS DISEASE [None]
  - DEEP VEIN THROMBOSIS [None]
  - DRUG HYPERSENSITIVITY [None]
  - EMOTIONAL DISTRESS [None]
  - EPISTAXIS [None]
  - GASTROOESOPHAGEAL REFLUX DISEASE [None]
  - HEART RATE IRREGULAR [None]
  - LUNG DISORDER [None]
  - OEDEMA PERIPHERAL [None]
  - OROPHARYNGEAL SWELLING [None]
  - SWELLING FACE [None]
  - SWOLLEN TONGUE [None]
